FAERS Safety Report 8220974 (Version 2)
Quarter: 2013Q4

REPORT INFORMATION
  Report Type: Spontaneous
  Country: US (occurrence: US)
  Receive Date: 20111102
  Receipt Date: 20131101
  Transmission Date: 20140711
  Serious: No
  Sender: FDA-Public Use
  Company Number: US-GLAXOSMITHKLINE-A0918028A

PATIENT
  Age: 70 Year
  Sex: Male

DRUGS (8)
  1. RYTHMOL SR [Suspect]
     Indication: ARRHYTHMIA
     Dosage: 325MG TWICE PER DAY
     Route: 048
     Dates: start: 2009
  2. PROPAFENONE HYDROCHLORIDE [Suspect]
     Indication: ARRHYTHMIA
     Route: 065
  3. PROPAFENONE HYDROCHLORIDE [Suspect]
     Indication: ARRHYTHMIA
     Dosage: 225MG THREE TIMES PER DAY
     Route: 065
     Dates: start: 2012
  4. PROSCAR [Concomitant]
  5. ONE A DAY VITAMIN [Concomitant]
  6. B12 COMPLEX [Concomitant]
  7. CALCIUM [Concomitant]
  8. FINASTERIDE [Concomitant]

REACTIONS (4)
  - Drug ineffective [Unknown]
  - Product quality issue [Unknown]
  - Constipation [Unknown]
  - Diarrhoea [Unknown]
